FAERS Safety Report 19582139 (Version 1)
Quarter: 2021Q3

REPORT INFORMATION
  Report Type: Spontaneous
  Country: US (occurrence: US)
  Receive Date: 20210717
  Receipt Date: 20210717
  Transmission Date: 20211014
  Serious: Yes (Hospitalization)
  Sender: FDA-Public Use
  Company Number: None

PATIENT
  Age: 23 Year
  Sex: Male
  Weight: 74.3 kg

DRUGS (6)
  1. METHOTREXATE. [Suspect]
     Active Substance: METHOTREXATE
     Dates: end: 20210412
  2. CYTARABINE. [Suspect]
     Active Substance: CYTARABINE
     Dates: end: 20210412
  3. CYCLOPHOSPHAMIDE. [Suspect]
     Active Substance: CYCLOPHOSPHAMIDE
     Dates: end: 20210405
  4. DOXORUBICIN HYDROCHLORIDE. [Suspect]
     Active Substance: DOXORUBICIN HYDROCHLORIDE
     Dates: end: 20210322
  5. ONCASPAR [Suspect]
     Active Substance: PEGASPARGASE
     Dosage: ?          OTHER DOSE:350000 UNIT;?
     Dates: end: 20210419
  6. VINCRISTINE SULFATE. [Suspect]
     Active Substance: VINCRISTINE SULFATE
     Dates: end: 20210419

REACTIONS (16)
  - Leukoencephalopathy [None]
  - Dysarthria [None]
  - Hemiplegia [None]
  - Asthenia [None]
  - Seizure [None]
  - Malaise [None]
  - Headache [None]
  - Photophobia [None]
  - Vomiting [None]
  - Facial paresis [None]
  - Anxiety [None]
  - Mental status changes [None]
  - Tachycardia [None]
  - Nausea [None]
  - Apnoea [None]
  - Fatigue [None]

NARRATIVE: CASE EVENT DATE: 20210419
